FAERS Safety Report 6899915-4 (Version None)
Quarter: 2010Q3

REPORT INFORMATION
  Report Type: 
  Country: None (occurrence: None)
  Receive Date: 20100803
  Receipt Date: 20100726
  Transmission Date: 20110219
  Serious: Yes (Other)
  Sender: FDA-Public Use
  Company Number: US-SANOFI-AVENTIS-2010SA044139

PATIENT
  Age: 66 Year
  Sex: Female
  Weight: 68 kg

DRUGS (7)
  1. AMBIEN CR [Suspect]
     Indication: INSOMNIA
     Route: 048
     Dates: start: 20091130, end: 20091204
  2. EVISTA [Concomitant]
     Indication: OSTEOPOROSIS
  3. ISOXSUPRINE HCL [Concomitant]
  4. ACIPHEX [Concomitant]
  5. RANITIDINE [Concomitant]
  6. ZIAC [Concomitant]
     Indication: PALPITATIONS
  7. LIPITOR [Concomitant]

REACTIONS (5)
  - ATRIAL FIBRILLATION [None]
  - CHEST PAIN [None]
  - NAUSEA [None]
  - PALPITATIONS [None]
  - VISION BLURRED [None]
